FAERS Safety Report 10051603 (Version 1)
Quarter: 2014Q2

REPORT INFORMATION
  Report Type: Spontaneous
  Country: GB (occurrence: GB)
  Receive Date: 20140401
  Receipt Date: 20140401
  Transmission Date: 20141212
  Serious: Yes (Other)
  Sender: FDA-Public Use
  Company Number: GB-MYLANLABS-2014S1006492

PATIENT
  Age: 68 Year
  Sex: Female
  Weight: 88.9 kg

DRUGS (5)
  1. MIRTAZAPINE [Suspect]
     Indication: INSOMNIA
     Dosage: HALF OF ONE TABLET (OF THE LOWEST DOSE STRENGTH OF MIRTAZAPINE)
     Route: 048
     Dates: start: 20140130, end: 20140131
  2. ASPIRIN [Concomitant]
  3. IBUPROFEN [Concomitant]
     Dates: end: 20091118
  4. NATRASLEEP [Concomitant]
     Indication: INSOMNIA
     Dates: start: 20131212, end: 20140110
  5. PARACETAMOL [Concomitant]
     Dates: start: 20091118

REACTIONS (3)
  - Psychomotor hyperactivity [Recovered/Resolved with Sequelae]
  - Psychotic disorder [Recovered/Resolved with Sequelae]
  - Self-injurious ideation [Recovered/Resolved with Sequelae]
